FAERS Safety Report 21259028 (Version 1)
Quarter: 2022Q3

REPORT INFORMATION
  Report Type: Spontaneous
  Country: DE (occurrence: DE)
  Receive Date: 20220826
  Receipt Date: 20220826
  Transmission Date: 20221027
  Serious: Yes (Hospitalization, Other)
  Sender: FDA-Public Use
  Company Number: DE-MLMSERVICE-20220809-3726248-1

PATIENT
  Sex: Female
  Weight: 3.25 kg

DRUGS (4)
  1. AMIODARONE [Interacting]
     Active Substance: AMIODARONE
     Indication: Supraventricular tachycardia
     Dosage: UNKNOWN; CONTINUOUS AMIODARONE INFUSION
     Route: 065
  2. AMIODARONE [Interacting]
     Active Substance: AMIODARONE
     Indication: Rhabdomyoma
  3. SIROLIMUS [Interacting]
     Active Substance: SIROLIMUS
     Indication: Ventricular tachycardia
     Route: 065
  4. SIROLIMUS [Interacting]
     Active Substance: SIROLIMUS
     Indication: Rhabdomyoma

REACTIONS (1)
  - Drug interaction [Recovered/Resolved]
